FAERS Safety Report 6764203-3 (Version None)
Quarter: 2010Q2

REPORT INFORMATION
  Report Type: 
  Country: None (occurrence: None)
  Receive Date: 20100610
  Receipt Date: 20100602
  Transmission Date: 20101027
  Serious: Yes (Life-Threatening, Hospitalization)
  Sender: FDA-Public Use
  Company Number: B0649317A

PATIENT
  Sex: Male
  Weight: 75 kg

DRUGS (1)
  1. ZINACEF [Suspect]
     Indication: PREMEDICATION
     Route: 042
     Dates: start: 20100416, end: 20100416

REACTIONS (7)
  - ANAPHYLACTIC SHOCK [None]
  - BRONCHOSPASM [None]
  - CIRCULATORY COLLAPSE [None]
  - ENDOTRACHEAL INTUBATION [None]
  - FACE OEDEMA [None]
  - HYPOTENSION [None]
  - LARYNGEAL OEDEMA [None]
